FAERS Safety Report 22181915 (Version 1)
Quarter: 2023Q2

REPORT INFORMATION
  Report Type: Report from Study
  Country: US (occurrence: US)
  Receive Date: 20230406
  Receipt Date: 20230406
  Transmission Date: 20230721
  Serious: Yes (Other)
  Sender: FDA-Public Use
  Company Number: US-GILEAD-2023-0622945

PATIENT
  Sex: Female

DRUGS (19)
  1. AZTREONAM LYSINE [Suspect]
     Active Substance: AZTREONAM LYSINE
     Indication: Product used for unknown indication
     Dosage: 75 MG, TID, INHALE 75 MG BY NEBULIZATION ROUTE 3 TIMES DAILY. MIX WITH PROVIDED 1ML STERILE SOLUTION
     Route: 055
  2. MONTELUKAST SODIUM [Concomitant]
     Active Substance: MONTELUKAST SODIUM
  3. TACROLIMUS [Concomitant]
     Active Substance: TACROLIMUS
  4. MAGNESIUM [Concomitant]
     Active Substance: MAGNESIUM
  5. ZYRTEC [Concomitant]
     Active Substance: CETIRIZINE HYDROCHLORIDE
  6. AZITHROMYCIN [Concomitant]
     Active Substance: AZITHROMYCIN
  7. CRESEMBA [Concomitant]
     Active Substance: ISAVUCONAZONIUM SULFATE
  8. PREDNISONE [Concomitant]
     Active Substance: PREDNISONE
  9. SIROLIMUS [Concomitant]
     Active Substance: SIROLIMUS
  10. PRAVASTATIN SODIUM [Concomitant]
     Active Substance: PRAVASTATIN SODIUM
  11. BIOTIN [Concomitant]
     Active Substance: BIOTIN
  12. LEXAPRO [Concomitant]
     Active Substance: ESCITALOPRAM OXALATE
  13. OMEPRAZOLE [Concomitant]
     Active Substance: OMEPRAZOLE
  14. FISH OIL [Concomitant]
     Active Substance: FISH OIL
  15. ESTRADIOL [Concomitant]
     Active Substance: ESTRADIOL
  16. ALBUTEROL SULFATE [Concomitant]
     Active Substance: ALBUTEROL SULFATE
  17. ASPIRIN [Concomitant]
     Active Substance: ASPIRIN
  18. TESTOSTERONE [Concomitant]
     Active Substance: TESTOSTERONE
  19. AMLODIPINE [Concomitant]
     Active Substance: AMLODIPINE BESYLATE

REACTIONS (4)
  - Pseudomonas infection [Recovered/Resolved]
  - Metapneumovirus infection [Recovered/Resolved]
  - Dyspnoea [Recovered/Resolved]
  - Intentional dose omission [Unknown]
